FAERS Safety Report 15084932 (Version 1)
Quarter: 2018Q2

REPORT INFORMATION
  Report Type: Spontaneous
  Country: US (occurrence: US)
  Receive Date: 20180628
  Receipt Date: 20180628
  Transmission Date: 20180711
  Serious: Yes (Other)
  Sender: FDA-Public Use
  Company Number: PHEH2018US024199

PATIENT
  Sex: Female

DRUGS (1)
  1. ALPRAZOLAM SANDOZ [Suspect]
     Active Substance: ALPRAZOLAM
     Indication: PRODUCT USED FOR UNKNOWN INDICATION
     Dosage: 0.25 MG, 6 TIMES A DAY
     Route: 065

REACTIONS (4)
  - Pruritus generalised [Unknown]
  - Panic attack [Unknown]
  - Asthma [Unknown]
  - Feeling abnormal [Unknown]
